FAERS Safety Report 7512376-7 (Version None)
Quarter: 2011Q2

REPORT INFORMATION
  Report Type: 
  Country: None (occurrence: None)
  Receive Date: 20110531
  Receipt Date: 20110520
  Transmission Date: 20111010
  Serious: Yes (Other)
  Sender: FDA-Public Use
  Company Number: JP-ROCHE-754037

PATIENT
  Age: 66 Year
  Sex: Female
  Weight: 50 kg

DRUGS (12)
  1. HERCEPTIN [Suspect]
     Dosage: DOSAGE IS UNCERTAIN.
     Route: 041
     Dates: start: 20100629, end: 20110204
  2. GEMZAR [Concomitant]
     Route: 041
     Dates: start: 20100511, end: 20101201
  3. HERCEPTIN [Suspect]
     Route: 041
     Dates: start: 20091109, end: 20100301
  4. ABRAXANE [Concomitant]
     Route: 041
     Dates: start: 20110204
  5. HERCEPTIN [Suspect]
     Indication: BREAST CANCER
     Route: 041
     Dates: start: 20070420, end: 20070420
  6. HERCEPTIN [Suspect]
     Route: 041
     Dates: start: 20070507, end: 20071119
  7. XELODA [Suspect]
     Indication: BREAST CANCER
     Route: 048
     Dates: start: 20090713, end: 20091108
  8. PACLITAXEL [Concomitant]
     Indication: BREAST CANCER METASTATIC
     Route: 041
     Dates: start: 20070709, end: 20090622
  9. TAXOTERE [Concomitant]
     Route: 041
     Dates: start: 20101208, end: 20110128
  10. HERCEPTIN [Suspect]
     Dosage: DOSAGE IS UNCERTAIN.
     Route: 041
     Dates: start: 20100511
  11. TYKERB [Concomitant]
     Route: 048
     Dates: start: 20090713, end: 20091108
  12. NAVELBINE [Concomitant]
     Dates: start: 20091109, end: 20100301

REACTIONS (3)
  - HYPERTENSION [None]
  - CARDIAC FAILURE [None]
  - CARDIOMEGALY [None]
